FAERS Safety Report 4984361-0 (Version None)
Quarter: 2006Q2

REPORT INFORMATION
  Report Type: 
  Country: None (occurrence: None)
  Receive Date: 20060427
  Receipt Date: 20060418
  Transmission Date: 20061013
  Serious: Yes (Hospitalization)
  Sender: FDA-Public Use
  Company Number: US-GILEAD-2006-0009468

PATIENT
  Age: 43 Year
  Sex: Male
  Weight: 68.1 kg

DRUGS (5)
  1. BLINDED EMTRICITABINE/TENOFOVIR DF [Suspect]
     Indication: HIV INFECTION
     Route: 048
     Dates: start: 20060130
  2. BLINDED ABACAVIR/LAMIVUDINE [Suspect]
     Indication: HIV INFECTION
     Route: 048
     Dates: start: 20060130
  3. SUSTIVA [Suspect]
     Indication: HIV INFECTION
     Route: 048
     Dates: start: 20060130
  4. DAPSONE [Concomitant]
     Route: 048
     Dates: start: 20060126
  5. AZITHROMYCIN [Concomitant]
     Route: 048
     Dates: start: 20060126

REACTIONS (3)
  - HYPOAESTHESIA [None]
  - LYMPHADENOPATHY [None]
  - LYMPHORRHOEA [None]
